FAERS Safety Report 8766802 (Version 2)
Quarter: 2012Q4

REPORT INFORMATION
  Report Type: 
  Country: JP (occurrence: JP)
  Receive Date: 20120904
  Receipt Date: 20120928
  Transmission Date: 20130627
  Serious: Yes (Other)
  Sender: FDA-Public Use
  Company Number: JP-SANOFI-AVENTIS-2012SA063084

PATIENT
  Age: 65 Year
  Sex: Female

DRUGS (8)
  1. MYSLEE [Suspect]
     Indication: DRUG USE FOR UNKNOWN INDICATION
     Dosage: taking zolpidem about 4years
     Route: 048
  2. ALINAMIN F [Concomitant]
  3. CINAL [Concomitant]
     Route: 048
  4. EPADEL [Concomitant]
  5. ALFAROL [Concomitant]
  6. OSTEN [Concomitant]
  7. ULCERLMIN [Concomitant]
     Dosage: form: fine granule
  8. MUCOSTA [Concomitant]

REACTIONS (1)
  - Intraocular pressure increased [Unknown]
